FAERS Safety Report 6165115-9 (Version None)
Quarter: 2009Q2

REPORT INFORMATION
  Report Type: 
  Country: None (occurrence: None)
  Receive Date: 20090421
  Receipt Date: 20090421
  Transmission Date: 20091009
  Serious: No
  Sender: FDA-Public Use
  Company Number: None

PATIENT
  Age: 69 Year
  Sex: Male
  Weight: 81.6475 kg

DRUGS (1)
  1. TOBRAMYCIN [Suspect]
     Indication: PSEUDOMONAS INFECTION
     Dosage: 420 MG/NS 100 ML ONCE DAILY IV DRIP
     Route: 041
     Dates: start: 20090115, end: 20090223

REACTIONS (2)
  - BALANCE DISORDER [None]
  - INNER EAR DISORDER [None]
